FAERS Safety Report 19263458 (Version 1)
Quarter: 2021Q2

REPORT INFORMATION
  Report Type: Other
  Country: CA (occurrence: CA)
  Receive Date: 20210517
  Receipt Date: 20210517
  Transmission Date: 20210717
  Serious: Yes (Other)
  Sender: FDA-Public Use
  Company Number: CA-APOTEX-2021AP011540

PATIENT
  Age: 82 Year
  Sex: Female
  Weight: 72 kg

DRUGS (1)
  1. APO?AMLODIPINE [Suspect]
     Active Substance: AMLODIPINE BESYLATE
     Indication: HYPERTENSION
     Dosage: 10 MILLIGRAM
     Route: 048

REACTIONS (2)
  - Cough [Recovered/Resolved]
  - Dyspepsia [Recovered/Resolved]
